FAERS Safety Report 5157243-1 (Version None)
Quarter: 2006Q4

REPORT INFORMATION
  Report Type: 
  Country: None (occurrence: None)
  Receive Date: 20061127
  Receipt Date: 20060421
  Transmission Date: 20070319
  Serious: Yes (Death)
  Sender: FDA-Public Use
  Company Number: DE-BAYER-200610533BVD

PATIENT
  Age: 57 Year
  Sex: Male
  Weight: 71 kg

DRUGS (6)
  1. SORAFENIB [Suspect]
     Indication: HEPATIC NEOPLASM MALIGNANT
     Dosage: AS USED: 800 MG
     Route: 048
     Dates: start: 20060228, end: 20060416
  2. BUSCOPAN [Concomitant]
     Route: 048
     Dates: start: 20060406
  3. PASPERTIN [Concomitant]
     Indication: NAUSEA
     Route: 048
     Dates: start: 20060307
  4. DOCITON [Concomitant]
     Indication: PORTAL HYPERTENSION
     Route: 048
  5. PANTOZOL [Concomitant]
     Route: 048
  6. SPIRONOLACTONE [Concomitant]
     Indication: PORTAL HYPERTENSION
     Route: 048
     Dates: start: 20051101

REACTIONS (1)
  - OESOPHAGEAL VARICES HAEMORRHAGE [None]
